FAERS Safety Report 24664622 (Version 1)
Quarter: 2024Q4

REPORT INFORMATION
  Report Type: Spontaneous
  Country: GB (occurrence: GB)
  Receive Date: 20241126
  Receipt Date: 20241126
  Transmission Date: 20250115
  Serious: Yes (Disabling, Other)
  Sender: BAYER HEALTHCARE PHARMACEUTICALS INC.
  Company Number: None

PATIENT
  Age: 43 Year
  Sex: Female
  Weight: 67 kg

DRUGS (4)
  1. CIPROFLOXACIN [Suspect]
     Active Substance: CIPROFLOXACIN
     Indication: Haematoma infection
     Dosage: 750 MG, BID
     Route: 048
     Dates: start: 20241014, end: 20241021
  2. DOXYCYCLINE [Concomitant]
     Active Substance: DOXYCYCLINE
     Indication: Haematoma infection
     Dates: start: 20241014, end: 20241021
  3. PIPERACILLIN SODIUM\TAZOBACTAM SODIUM [Concomitant]
     Active Substance: PIPERACILLIN SODIUM\TAZOBACTAM SODIUM
     Indication: Haematoma infection
     Route: 042
     Dates: start: 20240928, end: 20241014
  4. COCODAMOL [Concomitant]
     Active Substance: ACETAMINOPHEN\CODEINE PHOSPHATE
     Indication: Analgesic therapy
     Dates: start: 20240924, end: 20241108

REACTIONS (7)
  - Arthralgia [Recovered/Resolved with Sequelae]
  - Hypoaesthesia [None]
  - Pain in extremity [None]
  - Muscular weakness [Not Recovered/Not Resolved]
  - Amnesia [Not Recovered/Not Resolved]
  - Taste disorder [Not Recovered/Not Resolved]
  - Spinal disorder [None]

NARRATIVE: CASE EVENT DATE: 20241021
